FAERS Safety Report 22294470 (Version 1)
Quarter: 2023Q2

REPORT INFORMATION
  Report Type: Spontaneous
  Country: US (occurrence: US)
  Receive Date: 20230508
  Receipt Date: 20230508
  Transmission Date: 20230722
  Serious: No
  Sender: FDA-Public Use
  Company Number: US-ASTELLAS-2023US001655

PATIENT
  Age: 71 Year
  Sex: Male

DRUGS (4)
  1. LEXISCAN [Suspect]
     Active Substance: REGADENOSON
     Indication: Cardiac stress test
     Dosage: 0.4MG/5ML, UNKNOWN FREQ.
     Route: 065
     Dates: start: 20221117
  2. LEXISCAN [Suspect]
     Active Substance: REGADENOSON
     Indication: Cardiac stress test
     Dosage: 0.4MG/5ML, UNKNOWN FREQ.
     Route: 065
     Dates: start: 20221117
  3. LEXISCAN [Suspect]
     Active Substance: REGADENOSON
     Indication: Cardiac stress test
     Dosage: 0.4MG/5ML, UNKNOWN FREQ.
     Route: 065
     Dates: start: 20221117
  4. LEXISCAN [Suspect]
     Active Substance: REGADENOSON
     Indication: Cardiac stress test
     Dosage: 0.4MG/5ML, UNKNOWN FREQ.
     Route: 065
     Dates: start: 20221117

REACTIONS (2)
  - Administration site extravasation [Unknown]
  - Dyspnoea [Recovered/Resolved]

NARRATIVE: CASE EVENT DATE: 20221117
